FAERS Safety Report 6728087-1 (Version None)
Quarter: 2010Q2

REPORT INFORMATION
  Report Type: 
  Country: None (occurrence: None)
  Receive Date: 20100517
  Receipt Date: 20100507
  Transmission Date: 20101027
  Serious: Yes (Other)
  Sender: FDA-Public Use
  Company Number: GXKR2010JP05166

PATIENT
  Age: 77 Year
  Sex: Female

DRUGS (3)
  1. CILOSTAZOL [Suspect]
     Dosage: SINCE 10 YEARS
     Route: 065
  2. CIMETIDINE (NGX) [Interacting]
     Dosage: SINCE 10 YEARS
     Route: 065
  3. ANTIBIOTICS [Concomitant]
     Indication: PNEUMONIA ASPIRATION

REACTIONS (7)
  - ABDOMINAL PAIN UPPER [None]
  - ANAEMIA [None]
  - DRUG INTERACTION [None]
  - INTRA-ABDOMINAL HAEMATOMA [None]
  - NAUSEA [None]
  - PARENTERAL NUTRITION [None]
  - VOMITING [None]
